FAERS Safety Report 21273752 (Version 1)
Quarter: 2022Q3

REPORT INFORMATION
  Report Type: Spontaneous
  Country: US (occurrence: None)
  Receive Date: 20220830
  Receipt Date: 20220830
  Transmission Date: 20221026
  Serious: Yes (Disabling, Other)
  Sender: FDA-Public Use
  Company Number: None

PATIENT
  Age: 41 Year
  Sex: Female
  Weight: 63 kg

DRUGS (1)
  1. DULOXETINE [Suspect]
     Active Substance: DULOXETINE
     Indication: Trigeminal neuralgia
     Dosage: QUANTITY: 90 CAPSULES
     Route: 048

REACTIONS (6)
  - Somnolence [None]
  - Somnolence [None]
  - Loss of personal independence in daily activities [None]
  - Alopecia [None]
  - Product quality issue [None]
  - Product complaint [None]

NARRATIVE: CASE EVENT DATE: 20220801
